FAERS Safety Report 9768257 (Version 1)
Quarter: 2013Q4

REPORT INFORMATION
  Report Type: Report from Study
  Country: US (occurrence: US)
  Receive Date: 20131217
  Receipt Date: 20131217
  Transmission Date: 20140711
  Serious: Yes (Other)
  Sender: FDA-Public Use
  Company Number: US-ABBVIE-13P-163-1180190-00

PATIENT
  Age: 23 Year
  Sex: Female
  Weight: 59.02 kg

DRUGS (6)
  1. HUMIRA [Suspect]
     Indication: PSORIASIS
     Route: 058
     Dates: start: 2010, end: 201208
  2. HUMIRA [Suspect]
     Route: 058
     Dates: start: 201308, end: 201311
  3. HUMIRA [Suspect]
     Route: 058
     Dates: start: 20131206
  4. LAMICTAL [Concomitant]
     Indication: AFFECTIVE DISORDER
  5. LEXAPRO [Concomitant]
     Indication: ANTIDEPRESSANT THERAPY
  6. NUVARING [Concomitant]
     Indication: CONTRACEPTION
     Dates: start: 201305

REACTIONS (1)
  - Abortion spontaneous [Unknown]
